FAERS Safety Report 6318809-6 (Version None)
Quarter: 2009Q3

REPORT INFORMATION
  Report Type: 
  Country: None (occurrence: None)
  Receive Date: 20090821
  Receipt Date: 20090812
  Transmission Date: 20100115
  Serious: Yes (Other)
  Sender: FDA-Public Use
  Company Number: US-ABBOTT-09P-163-0590842-00

PATIENT
  Sex: Female
  Weight: 86.26 kg

DRUGS (3)
  1. HUMIRA [Suspect]
     Indication: PSORIATIC ARTHROPATHY
     Dates: start: 20070701, end: 20070801
  2. HUMIRA [Suspect]
     Dates: start: 20070801
  3. COUMADIN [Concomitant]
     Indication: HEART VALVE REPLACEMENT

REACTIONS (4)
  - CONFUSIONAL STATE [None]
  - PAIN [None]
  - PANIC ATTACK [None]
  - TRANSIENT ISCHAEMIC ATTACK [None]
